FAERS Safety Report 25660774 (Version 1)
Quarter: 2025Q3

REPORT INFORMATION
  Report Type: Spontaneous
  Country: EU (occurrence: EU)
  Receive Date: 20250808
  Receipt Date: 20250808
  Transmission Date: 20251020
  Serious: Yes (Disabling)
  Sender: RANBAXY
  Company Number: EU-SUN PHARMACEUTICAL INDUSTRIES LTD-2025RR-521940

PATIENT
  Age: 53 Year
  Sex: Male

DRUGS (1)
  1. SERTRALINE [Suspect]
     Active Substance: SERTRALINE HYDROCHLORIDE
     Indication: Persistent depressive disorder
     Dosage: 1X1
     Route: 065
     Dates: start: 20090721, end: 2025

REACTIONS (2)
  - Muscular weakness [Not Recovered/Not Resolved]
  - Muscle hypoxia [Not Recovered/Not Resolved]

NARRATIVE: CASE EVENT DATE: 20150101
